FAERS Safety Report 12611033 (Version 1)
Quarter: 2016Q3

REPORT INFORMATION
  Report Type: Spontaneous
  Country: US (occurrence: US)
  Receive Date: 20160801
  Receipt Date: 20160801
  Transmission Date: 20161109
  Serious: No
  Sender: FDA-Public Use
  Company Number: US-PFIZER INC-2016367526

PATIENT
  Age: 55 Year
  Sex: Female
  Weight: 80.27 kg

DRUGS (1)
  1. IBRANCE [Suspect]
     Active Substance: PALBOCICLIB
     Indication: BREAST CANCER METASTATIC
     Dosage: 125 MG, CYCLIC (D1-D21 EVERY 28 DAYS)
     Route: 048
     Dates: start: 20160710

REACTIONS (3)
  - Fatigue [Unknown]
  - Decreased appetite [Unknown]
  - Constipation [Unknown]

NARRATIVE: CASE EVENT DATE: 201607
